FAERS Safety Report 23227380 (Version 2)
Quarter: 2024Q1

REPORT INFORMATION
  Report Type: Spontaneous
  Country: US (occurrence: US)
  Receive Date: 20231124
  Receipt Date: 20240102
  Transmission Date: 20240410
  Serious: Yes (Death, Other)
  Sender: FDA-Public Use
  Company Number: US-PFIZER INC-202300392598

PATIENT
  Age: 86 Year
  Sex: Male
  Weight: 71.202 kg

DRUGS (1)
  1. VYNDAMAX [Suspect]
     Active Substance: TAFAMIDIS
     Indication: Amyloidosis
     Dosage: UNK, 1X/DAY
     Dates: end: 20230928

REACTIONS (3)
  - Cardiac amyloidosis [Fatal]
  - Coronary artery disease [Fatal]
  - Weight fluctuation [Unknown]
